FAERS Safety Report 6565330-6 (Version None)
Quarter: 2010Q1

REPORT INFORMATION
  Report Type: 
  Country: None (occurrence: None)
  Receive Date: 20100201
  Receipt Date: 20100120
  Transmission Date: 20100710
  Serious: Yes (Hospitalization, Other)
  Sender: FDA-Public Use
  Company Number: US-PFIZER INC-2009286630

PATIENT
  Sex: Male
  Weight: 136 kg

DRUGS (4)
  1. XANAX XR [Suspect]
     Indication: ANXIETY
     Dates: start: 20030101
  2. XANAX [Suspect]
     Indication: ANXIETY
  3. DEPAKOTE [Concomitant]
  4. WELLBUTRIN [Concomitant]

REACTIONS (19)
  - CHEST PAIN [None]
  - COLD SWEAT [None]
  - DIARRHOEA [None]
  - DRUG INEFFECTIVE [None]
  - HALLUCINATION [None]
  - HYPERSENSITIVITY [None]
  - HYPERTENSION [None]
  - INSOMNIA [None]
  - NAUSEA [None]
  - NERVOUSNESS [None]
  - PANIC ATTACK [None]
  - RESPIRATORY RATE INCREASED [None]
  - RETCHING [None]
  - SENSORY DISTURBANCE [None]
  - STRESS [None]
  - SUICIDE ATTEMPT [None]
  - TACHYCARDIA [None]
  - WEIGHT DECREASED [None]
  - WITHDRAWAL SYNDROME [None]
